FAERS Safety Report 24416771 (Version 2)
Quarter: 2024Q4

REPORT INFORMATION
  Report Type: Spontaneous
  Country: US (occurrence: US)
  Receive Date: 20241009
  Receipt Date: 20241014
  Transmission Date: 20250114
  Serious: No
  Sender: LEO PHARM
  Company Number: US-LEO Pharma-374102

PATIENT
  Age: 21 Year
  Sex: Male

DRUGS (1)
  1. ADBRY [Suspect]
     Active Substance: TRALOKINUMAB-LDRM
     Indication: Product used for unknown indication
     Dosage: TREATMENT IS ONGOING
     Route: 058

REACTIONS (4)
  - Injection site pruritus [Unknown]
  - Eczema [Unknown]
  - Injection site bruising [Unknown]
  - Injection site swelling [Recovered/Resolved]
